FAERS Safety Report 9732021 (Version 1)
Quarter: 2013Q4

REPORT INFORMATION
  Report Type: Spontaneous
  Country: US (occurrence: None)
  Receive Date: 20131204
  Receipt Date: 20131204
  Transmission Date: 20140711
  Serious: Yes (Other)
  Sender: FDA-Public Use
  Company Number: None

PATIENT
  Age: 69 Year
  Sex: Male
  Weight: 72.7 kg

DRUGS (2)
  1. 5-FU [Suspect]
     Indication: RECTAL CANCER
     Route: 042
     Dates: start: 20130528
  2. MOSAIQ VERSION2.30 [Suspect]

REACTIONS (1)
  - Incorrect dose administered by device [None]
